FAERS Safety Report 4404772-1 (Version None)
Quarter: 2004Q3

REPORT INFORMATION
  Report Type: 
  Country: None (occurrence: None)
  Receive Date: 20040720
  Receipt Date: 20040705
  Transmission Date: 20050211
  Serious: Yes (Hospitalization)
  Sender: FDA-Public Use
  Company Number: 361835

PATIENT
  Age: 54 Year
  Sex: Female
  Weight: 78 kg

DRUGS (1)
  1. SORIATANE [Suspect]
     Indication: DRUG USE FOR UNKNOWN INDICATION
     Dosage: 50 MG DAILY; ORAL
     Route: 048
     Dates: end: 20031215

REACTIONS (15)
  - ASPARTATE AMINOTRANSFERASE INCREASED [None]
  - BLOOD CREATINE PHOSPHOKINASE INCREASED [None]
  - BLOOD IMMUNOGLOBULIN A INCREASED [None]
  - BLOOD LACTATE DEHYDROGENASE INCREASED [None]
  - DRY MOUTH [None]
  - ELECTROMYOGRAM ABNORMAL [None]
  - ERYTHEMA [None]
  - GAIT DISTURBANCE [None]
  - INFECTION [None]
  - KERATOCONJUNCTIVITIS SICCA [None]
  - MOBILITY DECREASED [None]
  - MYALGIA [None]
  - MYOSITIS [None]
  - SKIN LESION [None]
  - THERAPY NON-RESPONDER [None]
